FAERS Safety Report 14337173 (Version 1)
Quarter: 2017Q4

REPORT INFORMATION
  Report Type: Spontaneous
  Country: BR (occurrence: BR)
  Receive Date: 20171229
  Receipt Date: 20171229
  Transmission Date: 20180321
  Serious: Yes (Other)
  Sender: FDA-Public Use
  Company Number: BR-JNJFOC-20171235471

PATIENT
  Age: 43 Year
  Sex: Female

DRUGS (2)
  1. CALTREN [Concomitant]
     Active Substance: NITRENDIPINE
     Indication: PULMONARY EMBOLISM
     Route: 048
     Dates: start: 201708
  2. XARELTO [Suspect]
     Active Substance: RIVAROXABAN
     Indication: PULMONARY EMBOLISM
     Route: 048
     Dates: start: 201707

REACTIONS (4)
  - Pneumonia [Unknown]
  - Increased upper airway secretion [Not Recovered/Not Resolved]
  - Immunodeficiency [Not Recovered/Not Resolved]
  - Pneumonia [Recovered/Resolved]

NARRATIVE: CASE EVENT DATE: 201709
